FAERS Safety Report 10046932 (Version 1)
Quarter: 2014Q1

REPORT INFORMATION
  Report Type: Spontaneous
  Country: US (occurrence: US)
  Receive Date: 20140331
  Receipt Date: 20140331
  Transmission Date: 20141002
  Serious: Yes (Hospitalization)
  Sender: FDA-Public Use
  Company Number: PHEH2014US006056

PATIENT
  Sex: Female

DRUGS (1)
  1. RECLAST [Suspect]
     Dosage: UNK UKN, UNK
     Route: 042
     Dates: start: 20130920

REACTIONS (21)
  - Blood sodium decreased [Unknown]
  - Eye disorder [Unknown]
  - Visual impairment [Unknown]
  - Lacrimation increased [Unknown]
  - Vision blurred [Unknown]
  - Dehydration [Not Recovered/Not Resolved]
  - Palpitations [Unknown]
  - Muscle spasms [Unknown]
  - Diarrhoea [Unknown]
  - Malaise [Unknown]
  - Pyrexia [Unknown]
  - Tremor [Unknown]
  - Pain in extremity [Unknown]
  - Musculoskeletal pain [Unknown]
  - Neck pain [Unknown]
  - Dizziness [Unknown]
  - Chills [Unknown]
  - Vomiting [Unknown]
  - Abdominal pain [Unknown]
  - Pain [Unknown]
  - Headache [Unknown]
